FAERS Safety Report 8936085 (Version 1)
Quarter: 2012Q4

REPORT INFORMATION
  Report Type: Spontaneous
  Country: US (occurrence: None)
  Receive Date: 20121128
  Receipt Date: 20121128
  Transmission Date: 20130627
  Serious: No
  Sender: FDA-Public Use
  Company Number: None

PATIENT
  Age: 46 Year
  Sex: Female
  Weight: 72.58 kg

DRUGS (1)
  1. NEUTROGENA HEALTHY DEFENSE DAILY MOISTURIZER SPF30 WITH HELIOPLEX [Suspect]

REACTIONS (1)
  - Product expiration date issue [None]
